FAERS Safety Report 7781972-4 (Version None)
Quarter: 2011Q3

REPORT INFORMATION
  Report Type: 
  Country: None (occurrence: None)
  Receive Date: 20110927
  Receipt Date: 20110913
  Transmission Date: 20111222
  Serious: Yes (Other)
  Sender: FDA-Public Use
  Company Number: PHHY2011BR82572

PATIENT
  Age: 45 Year
  Sex: Female

DRUGS (11)
  1. RASILEZ [Interacting]
     Dosage: 300 MG, QD
  2. METFORMIN HCL [Concomitant]
     Dosage: 850 MG, TID
  3. RASILEZ [Suspect]
     Dosage: 150 MG, QD
  4. DIGOXIN [Concomitant]
     Dosage: 0.25 MG, QD, 5 TIMES/WEEK
  5. CARVEDILOL [Concomitant]
     Dosage: 50 MG, QD
  6. METFORMIN HCL [Concomitant]
     Dosage: 1700 MG, QD
  7. METOPROLOL TARTRATE [Concomitant]
     Dosage: 200 MG, QD
  8. GLYBURIDE [Concomitant]
     Dosage: 15 MG, QD
  9. FUROSEMIDE [Concomitant]
     Dosage: 40 MG, QD
  10. ALDACTONE [Interacting]
     Dosage: 25 MG, QD
  11. LOSARTAN POTASSIUM [Interacting]
     Dosage: 100 MG, QD

REACTIONS (7)
  - DRUG INTERACTION [None]
  - HYPERKALAEMIA [None]
  - BLOOD PRESSURE INCREASED [None]
  - HAEMOGLOBIN DECREASED [None]
  - ATRIOVENTRICULAR BLOCK FIRST DEGREE [None]
  - GLYCOSYLATED HAEMOGLOBIN INCREASED [None]
  - BUNDLE BRANCH BLOCK LEFT [None]
